FAERS Safety Report 9097798 (Version 2)
Quarter: 2013Q1

REPORT INFORMATION
  Report Type: Spontaneous
  Country: IL (occurrence: IL)
  Receive Date: 20130212
  Receipt Date: 20130222
  Transmission Date: 20140127
  Serious: Yes (Hospitalization)
  Sender: FDA-Public Use
  Company Number: IL-BRISTOL-MYERS SQUIBB COMPANY-17366048

PATIENT
  Age: 58 Year
  Sex: Male

DRUGS (4)
  1. METFORMIN HCL [Suspect]
     Indication: TYPE 2 DIABETES MELLITUS
     Route: 048
     Dates: start: 20090522
  2. ATORVASTATIN [Concomitant]
     Route: 048
     Dates: start: 20091122
  3. RAMIPRIL [Concomitant]
     Dosage: 22MAY2009:27AUG2009-5 MG; 28AUG2009:ONG-2.5MG
     Route: 048
     Dates: start: 20090522
  4. PSEUDOEPHEDRINE HCL [Concomitant]
     Route: 048
     Dates: start: 200801

REACTIONS (1)
  - Non-cardiac chest pain [Recovered/Resolved]
